FAERS Safety Report 9262821 (Version 2)
Quarter: 2013Q2

REPORT INFORMATION
  Report Type: Spontaneous
  Country: US (occurrence: None)
  Receive Date: 20130423
  Receipt Date: 20130508
  Transmission Date: 20140414
  Serious: Yes (Hospitalization)
  Sender: FDA-Public Use
  Company Number: 2013PROUSA02743

PATIENT
  Age: 67 Year
  Sex: Male
  Weight: 78.5 kg

DRUGS (8)
  1. PROVENGE [Suspect]
     Indication: PROSTATE CANCER METASTATIC
     Route: 042
     Dates: start: 20120917, end: 20120917
  2. LUPRON (LEUPRORELIN ACETATE) [Concomitant]
  3. METFORMIN (METFORMIN HYDROCHLORIDE) [Concomitant]
  4. GLIPIZIDE (GLIPIZIDE) [Concomitant]
  5. LASIX (FUROSEMIDE SODIUM) [Concomitant]
  6. K-DUR (POTASSIUM CHLORIDE) [Concomitant]
  7. NORCO (HYDROCODONE BITARTRATE, PARACETAMOL) [Concomitant]
  8. TRAMADOL (TRAMADOL HYDROCHLORIDE) [Concomitant]

REACTIONS (10)
  - Deep vein thrombosis [None]
  - Fall [None]
  - Head injury [None]
  - Muscle spasms [None]
  - Hypoaesthesia [None]
  - Confusional state [None]
  - Sinus disorder [None]
  - Hepatic steatosis [None]
  - Constipation [None]
  - Gait disturbance [None]
